FAERS Safety Report 7579362-2 (Version None)
Quarter: 2011Q2

REPORT INFORMATION
  Report Type: 
  Country: None (occurrence: None)
  Receive Date: 20110629
  Receipt Date: 20110618
  Transmission Date: 20111010
  Serious: Yes (Hospitalization, Other)
  Sender: FDA-Public Use
  Company Number: GB-PAR PHARMACEUTICAL, INC-2011SCPR003081

PATIENT

DRUGS (5)
  1. PROPOFOL [Concomitant]
     Indication: INDUCTION OF ANAESTHESIA
     Dosage: UNK, UNKNOWN
     Route: 042
  2. ONDANSETRON [Suspect]
     Indication: PROPHYLAXIS OF NAUSEA AND VOMITING
     Dosage: 4 MG, UNKNOWN
     Route: 065
  3. SEVOFLURANE [Concomitant]
     Indication: MAINTENANCE OF ANAESTHESIA
     Dosage: UNK, UNKNOWN
     Route: 065
  4. DEXAMETHASONE [Suspect]
     Indication: PROPHYLAXIS OF NAUSEA AND VOMITING
     Dosage: 8 MG, UNKNOWN
     Route: 065
  5. FENTANYL [Concomitant]
     Indication: INDUCTION OF ANAESTHESIA
     Dosage: UNK, UNKNOWN
     Route: 042

REACTIONS (1)
  - MIGRAINE [None]
